FAERS Safety Report 9517654 (Version 1)
Quarter: 2013Q3

REPORT INFORMATION
  Report Type: Spontaneous
  Country: US (occurrence: US)
  Receive Date: 20130912
  Receipt Date: 20130912
  Transmission Date: 20140515
  Serious: Yes (Hospitalization)
  Sender: FDA-Public Use
  Company Number: US-BIOGENIDEC-2013BI085163

PATIENT
  Age: 33 Year
  Sex: Male

DRUGS (1)
  1. AVONEX [Suspect]
     Indication: MULTIPLE SCLEROSIS
     Route: 030
     Dates: start: 20080812, end: 20130805

REACTIONS (3)
  - Hip arthroplasty [Recovered/Resolved]
  - Ligament rupture [Recovered/Resolved]
  - Multiple sclerosis relapse [Not Recovered/Not Resolved]
